FAERS Safety Report 4874231-0 (Version None)
Quarter: 2006Q1

REPORT INFORMATION
  Report Type: 
  Country: None (occurrence: None)
  Receive Date: 20060104
  Receipt Date: 20060104
  Transmission Date: 20060701
  Serious: Yes (Hospitalization)
  Sender: FDA-Public Use
  Company Number: None

PATIENT
  Age: 31 Year
  Sex: Female
  Weight: 61.2356 kg

DRUGS (6)
  1. ZITHROMAX [Suspect]
     Indication: SINUSITIS
     Dosage: TWO ZITH, IN ONE DAY
     Dates: start: 20050616
  2. LEVAQUIN [Suspect]
     Dosage: 500 MG FOR 5 DAYS
  3. LEVOXYL [Concomitant]
  4. TRIVORA-28 [Concomitant]
  5. BENZACLIN [Concomitant]
  6. DIFFERIN [Concomitant]

REACTIONS (4)
  - HOSPITALISATION [None]
  - IMPAIRED WORK ABILITY [None]
  - INVESTIGATION [None]
  - SINUS HEADACHE [None]
